FAERS Safety Report 7111120-5 (Version None)
Quarter: 2010Q4

REPORT INFORMATION
  Report Type: 
  Country: None (occurrence: None)
  Receive Date: 20101118
  Receipt Date: 20101110
  Transmission Date: 20110411
  Serious: Yes (Other)
  Sender: FDA-Public Use
  Company Number: NL-AMGEN-NLDSP2010004081

PATIENT

DRUGS (1)
  1. NPLATE [Suspect]
     Indication: PRODUCT USED FOR UNKNOWN INDICATION
     Dosage: 10 A?G, UNK

REACTIONS (3)
  - HAEMORRHAGIC DIATHESIS [None]
  - SPLENECTOMY [None]
  - UNEVALUABLE EVENT [None]
